FAERS Safety Report 13073155 (Version 1)
Quarter: 2016Q4

REPORT INFORMATION
  Report Type: Spontaneous
  Country: GB (occurrence: GB)
  Receive Date: 20161229
  Receipt Date: 20161229
  Transmission Date: 20170207
  Serious: Yes (Other)
  Sender: FDA-Public Use
  Company Number: GB-PFIZER INC-2016600153

PATIENT
  Age: 39 Year
  Sex: Female
  Weight: 135 kg

DRUGS (2)
  1. PREGABALIN. [Suspect]
     Active Substance: PREGABALIN
     Indication: NEURALGIA
     Dosage: 150 MG, UNK
     Route: 048
     Dates: start: 20161030, end: 20161210
  2. LEVOTHYROXINE. [Concomitant]
     Active Substance: LEVOTHYROXINE

REACTIONS (10)
  - Feeling abnormal [Not Recovered/Not Resolved]
  - Disturbance in attention [Unknown]
  - Bradyphrenia [Unknown]
  - Pruritus [Not Recovered/Not Resolved]
  - Hot flush [Not Recovered/Not Resolved]
  - Confusional state [Not Recovered/Not Resolved]
  - Skin burning sensation [Not Recovered/Not Resolved]
  - Vomiting in pregnancy [Not Recovered/Not Resolved]
  - Dysarthria [Unknown]
  - Photopsia [Not Recovered/Not Resolved]

NARRATIVE: CASE EVENT DATE: 20161101
